FAERS Safety Report 6758260-8 (Version None)
Quarter: 2010Q2

REPORT INFORMATION
  Report Type: 
  Country: None (occurrence: None)
  Receive Date: 20100607
  Receipt Date: 20100525
  Transmission Date: 20101027
  Serious: Yes (Hospitalization)
  Sender: FDA-Public Use
  Company Number: DK-ABBOTT-10P-044-0647338-00

PATIENT
  Sex: Male

DRUGS (3)
  1. AKINETON [Suspect]
     Indication: DYSKINESIA
     Dosage: SINGLE DOSE
     Route: 042
     Dates: start: 20100510, end: 20100510
  2. PRIMPERAN TAB [Concomitant]
     Indication: DRUG USE FOR UNKNOWN INDICATION
  3. PENICILLIN [Concomitant]
     Indication: BREAST PROSTHESIS USER
     Dates: start: 20100428

REACTIONS (2)
  - DYSPNOEA [None]
  - THROAT TIGHTNESS [None]
